FAERS Safety Report 11972284 (Version 1)
Quarter: 2016Q1

REPORT INFORMATION
  Report Type: Report from Study
  Country: CA (occurrence: CA)
  Receive Date: 20160128
  Receipt Date: 20160128
  Transmission Date: 20160526
  Serious: Yes (Death)
  Sender: FDA-Public Use
  Company Number: CA-MYLANLABS-2015M1043956

PATIENT
  Age: 61 Year
  Sex: Male

DRUGS (1)
  1. GEN-CLOZAPINE [Suspect]
     Active Substance: CLOZAPINE
     Dosage: UNK
     Dates: start: 19990615

REACTIONS (2)
  - Neoplasm malignant [Fatal]
  - Anaemia [Unknown]

NARRATIVE: CASE EVENT DATE: 20151130
